FAERS Safety Report 21614946 (Version 3)
Quarter: 2022Q4

REPORT INFORMATION
  Report Type: Spontaneous
  Country: CA (occurrence: CA)
  Receive Date: 20221118
  Receipt Date: 20221219
  Transmission Date: 20230113
  Serious: Yes (Other)
  Sender: FDA-Public Use
  Company Number: CA-GLAXOSMITHKLINE-CA2022149749

PATIENT

DRUGS (4)
  1. ZEJULA [Suspect]
     Active Substance: NIRAPARIB
     Indication: Ovarian epithelial cancer recurrent
     Dosage: 200 MG, QD
     Route: 048
     Dates: start: 20221017
  2. ZEJULA [Suspect]
     Active Substance: NIRAPARIB
     Indication: Fallopian tube cancer
  3. ZEJULA [Suspect]
     Active Substance: NIRAPARIB
     Indication: Malignant peritoneal neoplasm
  4. XARELTO [Concomitant]
     Active Substance: RIVAROXABAN
     Indication: Product used for unknown indication
     Dosage: UNK

REACTIONS (12)
  - Urinary retention [Unknown]
  - Hunger [Unknown]
  - Dyspepsia [Unknown]
  - Headache [Recovered/Resolved]
  - Nasal congestion [Unknown]
  - Vomiting [Not Recovered/Not Resolved]
  - Sinus headache [Recovered/Resolved]
  - Micturition urgency [Recovered/Resolved]
  - Blood pressure increased [Unknown]
  - Micturition disorder [Unknown]
  - Paranasal sinus discomfort [Recovered/Resolved]
  - Tension headache [Recovered/Resolved]

NARRATIVE: CASE EVENT DATE: 20221001
